FAERS Safety Report 6883726-X (Version None)
Quarter: 2010Q3

REPORT INFORMATION
  Report Type: 
  Country: None (occurrence: None)
  Receive Date: 20100729
  Receipt Date: 20100719
  Transmission Date: 20110219
  Serious: Yes (Death, Hospitalization)
  Sender: FDA-Public Use
  Company Number: A0872590A

PATIENT
  Age: 70 Year
  Sex: Male

DRUGS (6)
  1. ZOVIRAX [Suspect]
     Indication: PRODUCT USED FOR UNKNOWN INDICATION
     Route: 065
  2. PIRFENIDONE [Suspect]
     Indication: IDIOPATHIC PULMONARY FIBROSIS
     Dosage: 200MG THREE TIMES PER DAY
     Route: 048
     Dates: start: 20090615, end: 20100128
  3. OXYGEN THERAPY [Concomitant]
  4. MAGMITT [Concomitant]
  5. CODEINE PHOSPHATE [Concomitant]
  6. MUCOFILIN [Concomitant]

REACTIONS (12)
  - ALANINE AMINOTRANSFERASE INCREASED [None]
  - ASCITES [None]
  - ASPARTATE AMINOTRANSFERASE INCREASED [None]
  - BLOOD ALKALINE PHOSPHATASE INCREASED [None]
  - BLOOD LACTATE DEHYDROGENASE INCREASED [None]
  - C-REACTIVE PROTEIN INCREASED [None]
  - CIRCULATORY COLLAPSE [None]
  - GAMMA-GLUTAMYLTRANSFERASE INCREASED [None]
  - IDIOPATHIC PULMONARY FIBROSIS [None]
  - LIVER DISORDER [None]
  - PNEUMOTHORAX [None]
  - PYREXIA [None]
